FAERS Safety Report 10768522 (Version 2)
Quarter: 2015Q2

REPORT INFORMATION
  Report Type: Spontaneous
  Country: DE (occurrence: DE)
  Receive Date: 20150206
  Receipt Date: 20150508
  Transmission Date: 20150821
  Serious: Yes (Death, Life-Threatening, Disabling)
  Sender: FDA-Public Use
  Company Number: DE-ROCHE-1531899

PATIENT
  Age: 63 Year
  Sex: Male

DRUGS (6)
  1. DUROGESIC [Concomitant]
     Active Substance: FENTANYL
     Route: 048
     Dates: end: 201501
  2. METHYLPREDNISOLONE. [Concomitant]
     Active Substance: METHYLPREDNISOLONE
     Route: 048
     Dates: end: 201412
  3. AVASTIN [Suspect]
     Active Substance: BEVACIZUMAB
     Indication: LUNG NEOPLASM MALIGNANT
     Route: 042
  4. CELEBREX [Concomitant]
     Active Substance: CELECOXIB
     Route: 048
     Dates: end: 201501
  5. TOREM [Concomitant]
     Active Substance: TORSEMIDE
     Route: 048
     Dates: end: 201501
  6. VIANI FORTE [Concomitant]
     Active Substance: FLUTICASONE PROPIONATE\SALMETEROL XINAFOATE
     Dosage: 50 / 500 UG
     Route: 055
     Dates: end: 201501

REACTIONS (7)
  - General physical condition abnormal [Not Recovered/Not Resolved]
  - Dyspnoea at rest [Not Recovered/Not Resolved]
  - Malignant neoplasm progression [Fatal]
  - Idiopathic pulmonary fibrosis [Fatal]
  - Alveolar lung disease [Fatal]
  - Decreased appetite [Not Recovered/Not Resolved]
  - Asthenia [Not Recovered/Not Resolved]

NARRATIVE: CASE EVENT DATE: 20141229
